FAERS Safety Report 8513844-1 (Version None)
Quarter: 2012Q3

REPORT INFORMATION
  Report Type: 
  Country: None (occurrence: None)
  Receive Date: 20120705
  Receipt Date: 20120618
  Transmission Date: 20120928
  Serious: Yes (Other)
  Sender: FDA-Public Use
  Company Number: 2012US-56471

PATIENT
  Sex: Male

DRUGS (2)
  1. LORATADINE [Suspect]
     Indication: MULTIPLE ALLERGIES
     Dates: start: 20120418
  2. FLONASE [Concomitant]

REACTIONS (3)
  - CONVULSION [None]
  - LOSS OF CONSCIOUSNESS [None]
  - FALL [None]
